FAERS Safety Report 8906303 (Version 1)
Quarter: 2012Q4

REPORT INFORMATION
  Report Type: Spontaneous
  Country: US (occurrence: None)
  Receive Date: 20121107
  Receipt Date: 20121107
  Transmission Date: 20130627
  Serious: Yes (Other)
  Sender: FDA-Public Use
  Company Number: AUR-APL-2012-04601

PATIENT
  Age: 94 Year
  Sex: Male

DRUGS (6)
  1. LISINOPRIL [Suspect]
     Indication: DRUG USE FOR UNKNOWN INDICATION
  2. FUROSEMIDE (FUROSEMIDE) [Suspect]
     Indication: DRUG USE FOR UNKNOWN INDICATION
     Dosage: (1 Dosage forms, 1 D) , Oral
     Dates: start: 20120812, end: 20120825
  3. LUVION [Suspect]
     Indication: DRUG USE FOR UNKNOWN INDICATION
     Dosage: (50 mg, 1 D), Oral
     Route: 048
     Dates: start: 20120812, end: 20120825
  4. LEVOFLOXACIN (LEVOFLOXACIN) [Concomitant]
  5. ACETYLSALICYLIC ACID [Concomitant]
  6. AVODART (DUTASTERIDE) [Concomitant]

REACTIONS (3)
  - Blood creatinine increased [None]
  - Accidental overdose [None]
  - Dehydration [None]
